FAERS Safety Report 6265107-5 (Version None)
Quarter: 2009Q3

REPORT INFORMATION
  Report Type: 
  Country: None (occurrence: None)
  Receive Date: 20090709
  Receipt Date: 20090709
  Transmission Date: 20100115
  Serious: Yes (Other)
  Sender: FDA-Public Use
  Company Number: None

PATIENT
  Sex: Male
  Weight: 106.5953 kg

DRUGS (2)
  1. LEVAQUIN [Suspect]
     Indication: INFECTION
     Dosage: 500MG ONCE A DAY ORAL
     Route: 048
     Dates: start: 20090403, end: 20090417
  2. TESTIM [Concomitant]

REACTIONS (2)
  - ARTHRALGIA [None]
  - TENDON DISORDER [None]
